FAERS Safety Report 15263938 (Version 1)
Quarter: 2018Q3

REPORT INFORMATION
  Report Type: Spontaneous
  Country: US (occurrence: US)
  Receive Date: 20180810
  Receipt Date: 20180810
  Transmission Date: 20181010
  Serious: No
  Sender: FDA-Public Use
  Company Number: US-SA-2018SA218219

PATIENT
  Sex: Male

DRUGS (3)
  1. CERDELGA [Suspect]
     Active Substance: ELIGLUSTAT
     Indication: GAUCHER^S DISEASE
  2. POMALIDOMIDE [Interacting]
     Active Substance: POMALIDOMIDE
     Indication: PLASMA CELL MYELOMA
  3. LANTUS [Concomitant]
     Active Substance: INSULIN GLARGINE
     Indication: DIABETES MELLITUS
     Dosage: 1 SHOT, QD

REACTIONS (3)
  - Drug level increased [Unknown]
  - Feeling abnormal [Unknown]
  - Drug interaction [Unknown]
